FAERS Safety Report 12649834 (Version 1)
Quarter: 2016Q3

REPORT INFORMATION
  Report Type: Spontaneous
  Country: US (occurrence: US)
  Receive Date: 20160812
  Receipt Date: 20160812
  Transmission Date: 20161109
  Serious: No
  Sender: FDA-Public Use
  Company Number: US-ASTRAZENECA-2016SE81543

PATIENT
  Age: 20204 Day
  Sex: Female
  Weight: 71.7 kg

DRUGS (4)
  1. BYETTA [Suspect]
     Active Substance: EXENATIDE
     Indication: TYPE 2 DIABETES MELLITUS
     Route: 058
     Dates: start: 20160726
  2. LEVAMIN [Concomitant]
     Indication: DIABETES MELLITUS
     Dosage: 15 UNITS OF LEVAMIN TWICE A DAY
  3. NOVOLOG [Concomitant]
     Active Substance: INSULIN ASPART
     Indication: DIABETES MELLITUS
     Dosage: 50 UNITS OF NOVOLOG 3 TIMES
     Route: 058
  4. INSULIN [Concomitant]
     Active Substance: INSULIN NOS

REACTIONS (7)
  - Dyspnoea [Unknown]
  - Feeling jittery [Unknown]
  - Diabetes mellitus inadequate control [Unknown]
  - Vomiting [Unknown]
  - Nausea [Unknown]
  - Pallor [Unknown]
  - Dizziness [Unknown]

NARRATIVE: CASE EVENT DATE: 20160726
